FAERS Safety Report 11804739 (Version 1)
Quarter: 2015Q4

REPORT INFORMATION
  Report Type: Spontaneous
  Country: US (occurrence: None)
  Receive Date: 20151204
  Receipt Date: 20151204
  Transmission Date: 20160305
  Serious: Yes (Life-Threatening, Disabling)
  Sender: FDA-Public Use
  Company Number: None

PATIENT
  Age: 80 Year
  Sex: Female
  Weight: 81.6 kg

DRUGS (3)
  1. ACD-A [Suspect]
     Active Substance: ANHYDROUS CITRIC ACID\DEXTROSE MONOHYDRATE\SODIUM CITRATE
     Indication: ANTICOAGULANT THERAPY
     Dosage: NOT FOR IV USE
     Dates: start: 20151117, end: 20151120
  2. PRESSORS [Concomitant]
  3. ELECTROLYTES [Concomitant]
     Active Substance: ELECTROLYTES NOS

REACTIONS (4)
  - Incorrect route of drug administration [None]
  - Blood calcium decreased [None]
  - Product label issue [None]
  - Device use error [None]

NARRATIVE: CASE EVENT DATE: 20151117
